FAERS Safety Report 4750451-0 (Version None)
Quarter: 2005Q3

REPORT INFORMATION
  Report Type: 
  Country: None (occurrence: None)
  Receive Date: 20050823
  Receipt Date: 20050627
  Transmission Date: 20060218
  Serious: Yes (Other)
  Sender: FDA-Public Use
  Company Number: US-GLAXOSMITHKLINE-A0564272A

PATIENT
  Age: 58 Year
  Sex: Female
  Weight: 71.8 kg

DRUGS (3)
  1. WELLBUTRIN [Suspect]
     Indication: DEPRESSION
     Dosage: 300MG PER DAY
     Route: 048
     Dates: start: 20050401
  2. SYNTHROID [Concomitant]
  3. LITHIUM [Concomitant]

REACTIONS (1)
  - ASTHMA [None]
